FAERS Safety Report 13598941 (Version 1)
Quarter: 2017Q2

REPORT INFORMATION
  Report Type: Spontaneous
  Country: US (occurrence: US)
  Receive Date: 20170531
  Receipt Date: 20170531
  Transmission Date: 20170830
  Serious: No
  Sender: FDA-Public Use
  Company Number: US-ELI_LILLY_AND_COMPANY-US201705012196

PATIENT
  Age: 52 Year
  Sex: Female

DRUGS (3)
  1. HUMULIN R U-500 [Suspect]
     Active Substance: INSULIN HUMAN
     Dosage: 120 U, EACH EVENING
     Route: 065
     Dates: start: 201704
  2. HUMULIN R U-500 [Suspect]
     Active Substance: INSULIN HUMAN
     Indication: PRODUCT USED FOR UNKNOWN INDICATION
     Dosage: 140 U, EACH MORNING
     Route: 065
     Dates: start: 201704
  3. NOVOLIN R [Concomitant]
     Active Substance: INSULIN HUMAN
     Indication: TYPE 1 DIABETES MELLITUS
     Dosage: UNK, TID IN SLIDING SCALE

REACTIONS (5)
  - Underdose [Unknown]
  - Incorrect product storage [Unknown]
  - Nausea [Recovered/Resolved]
  - Nervousness [Recovered/Resolved]
  - Tremor [Recovered/Resolved]

NARRATIVE: CASE EVENT DATE: 20170529
